FAERS Safety Report 10379735 (Version 1)
Quarter: 2014Q3

REPORT INFORMATION
  Report Type: Spontaneous
  Country: GB (occurrence: None)
  Receive Date: 20140808
  Receipt Date: 20140808
  Transmission Date: 20150326
  Serious: Yes (Life-Threatening, Hospitalization)
  Sender: FDA-Public Use
  Company Number: 2469422

PATIENT
  Age: 65 Year
  Sex: Female
  Weight: 63.5 kg

DRUGS (14)
  1. MESALAZINE [Concomitant]
     Active Substance: MESALAMINE
  2. OXYCODONE HYDROCHLORIDE. [Concomitant]
     Active Substance: OXYCODONE HYDROCHLORIDE
  3. PARACETAMOL [Concomitant]
     Active Substance: ACETAMINOPHEN
  4. PREGABALIN. [Concomitant]
     Active Substance: PREGABALIN
  5. MEROPENEM. [Suspect]
     Active Substance: MEROPENEM
     Indication: CELLULITIS
     Dosage: 1 G GRAM(S), 3 DAY
     Route: 042
     Dates: start: 20140617, end: 20140618
  6. LINEZOLID. [Suspect]
     Active Substance: LINEZOLID
     Indication: CELLULITIS
     Dosage: 600 MG MILLIGRAM(S), 2 DAY
     Route: 042
     Dates: start: 20140617, end: 20140618
  7. LANSOPRAZOLE. [Concomitant]
     Active Substance: LANSOPRAZOLE
  8. LETROZOLE. [Concomitant]
     Active Substance: LETROZOLE
  9. BISOPROLOL [Concomitant]
     Active Substance: BISOPROLOL
  10. CLINDAMYCIN [Suspect]
     Active Substance: CLINDAMYCIN\CLINDAMYCIN PHOSPHATE
     Indication: CELLULITIS
     Dosage: 600 MG MILLIGRAM(S), 3 DAY
     Route: 042
     Dates: start: 20140616, end: 20140616
  11. TORASEMIDE [Concomitant]
     Active Substance: TORSEMIDE
  12. AMITRIPTYLINE [Concomitant]
     Active Substance: AMITRIPTYLINE
  13. CITALOPRAM [Concomitant]
     Active Substance: CITALOPRAM HYDROBROMIDE
  14. CLONAZEPAM. [Concomitant]
     Active Substance: CLONAZEPAM

REACTIONS (1)
  - Toxic epidermal necrolysis [None]

NARRATIVE: CASE EVENT DATE: 20140617
